FAERS Safety Report 19677615 (Version 3)
Quarter: 2021Q3

REPORT INFORMATION
  Report Type: Spontaneous
  Country: US (occurrence: US)
  Receive Date: 20210809
  Receipt Date: 20210816
  Transmission Date: 20211014
  Serious: Yes (Death, Hospitalization, Other)
  Sender: FDA-Public Use
  Company Number: US-ALLERGAN-2127596US

PATIENT
  Sex: Female
  Weight: 49.89 kg

DRUGS (2)
  1. LINZESS [Suspect]
     Active Substance: LINACLOTIDE
     Dosage: 72 ?G, QD
     Route: 048
  2. LINZESS [Suspect]
     Active Substance: LINACLOTIDE
     Indication: CONSTIPATION
     Dosage: 72 ?G, BID
     Route: 048
     Dates: start: 20210605, end: 20210605

REACTIONS (3)
  - Large intestine perforation [Fatal]
  - Drug ineffective [Unknown]
  - Diverticulitis [Fatal]
